FAERS Safety Report 8996849 (Version 1)
Quarter: 2013Q1

REPORT INFORMATION
  Report Type: Report from Study
  Country: CA (occurrence: CA)
  Receive Date: 20130104
  Receipt Date: 20130104
  Transmission Date: 20140127
  Serious: Yes (Other)
  Sender: FDA-Public Use
  Company Number: CA-JNJFOC-20121213928

PATIENT
  Sex: Male

DRUGS (15)
  1. REMICADE [Suspect]
     Indication: CROHN^S DISEASE
     Dosage: ALTERNATING 500 MG THEN 600MG ONCE IN 6 WEEKS
     Route: 042
     Dates: start: 20060511
  2. REMICADE [Suspect]
     Indication: CROHN^S DISEASE
     Dosage: 54TH INFUSION
     Route: 042
     Dates: start: 20121221
  3. PERCOCET [Concomitant]
     Route: 065
  4. 6 MP [Concomitant]
     Route: 065
  5. ELAVIL [Concomitant]
     Route: 065
  6. LISINOPRIL [Concomitant]
     Route: 065
  7. OMEPRAZOLE [Concomitant]
     Route: 065
  8. TEMAZEPAM [Concomitant]
     Route: 065
  9. TESTOSTERONE [Concomitant]
     Route: 065
  10. OXYCODONE [Concomitant]
     Route: 065
  11. NIFEDIPINE [Concomitant]
     Route: 065
  12. ADALAT [Concomitant]
     Route: 065
  13. FLOVENT [Concomitant]
     Route: 065
  14. VITAMIN B12 [Concomitant]
     Route: 065
  15. TYLENOL [Concomitant]
     Route: 065

REACTIONS (5)
  - Ileus [Unknown]
  - Ocular hyperaemia [Unknown]
  - Pruritus [Unknown]
  - Lacrimation increased [Unknown]
  - Laceration [Recovering/Resolving]
